FAERS Safety Report 12228941 (Version 1)
Quarter: 2016Q1

REPORT INFORMATION
  Report Type: Spontaneous
  Country: US (occurrence: None)
  Receive Date: 20160331
  Receipt Date: 20160331
  Transmission Date: 20160526
  Serious: Yes (Other)
  Sender: FDA-Public Use
  Company Number: None

PATIENT
  Age: 57 Year
  Sex: Female
  Weight: 61.24 kg

DRUGS (6)
  1. MINIVELLE PATCHES [Concomitant]
  2. MEFLOQUINE, 250 MG [Suspect]
     Active Substance: MEFLOQUINE
     Indication: MALARIA PROPHYLAXIS
     Route: 048
     Dates: start: 20160224, end: 20160309
  3. METOPROLOL. [Concomitant]
     Active Substance: METOPROLOL
  4. ALEVE [Concomitant]
     Active Substance: NAPROXEN SODIUM
  5. HAIR SKIN NAIL VITAMIN [Concomitant]
  6. OMEPRAZOLE. [Concomitant]
     Active Substance: OMEPRAZOLE

REACTIONS (7)
  - Paranoia [None]
  - Insomnia [None]
  - Nightmare [None]
  - Heart rate increased [None]
  - Amnesia [None]
  - Panic attack [None]
  - Weight decreased [None]

NARRATIVE: CASE EVENT DATE: 20160310
